FAERS Safety Report 7520523-6 (Version None)
Quarter: 2011Q2

REPORT INFORMATION
  Report Type: 
  Country: None (occurrence: None)
  Receive Date: 20110602
  Receipt Date: 20110519
  Transmission Date: 20111010
  Serious: Yes (Other)
  Sender: FDA-Public Use
  Company Number: US-ELI_LILLY_AND_COMPANY-US201105006636

PATIENT
  Age: 30 Year
  Sex: Female

DRUGS (1)
  1. ZYPREXA [Suspect]
     Dosage: 20 MG, QD
     Dates: start: 20110516, end: 20110516

REACTIONS (2)
  - PULMONARY EMBOLISM [None]
  - DEEP VEIN THROMBOSIS [None]
